FAERS Safety Report 8350822-X (Version None)
Quarter: 2012Q2

REPORT INFORMATION
  Report Type: 
  Country: None (occurrence: None)
  Receive Date: 20120510
  Receipt Date: 20120507
  Transmission Date: 20120825
  Serious: Yes (Hospitalization, Other)
  Sender: FDA-Public Use
  Company Number: US-PFIZER INC-2012111981

PATIENT
  Sex: Female
  Weight: 81.6 kg

DRUGS (11)
  1. LYRICA [Suspect]
     Indication: OCCIPITAL NEURALGIA
     Dosage: 300 MG, 2X/DAY
     Dates: start: 20110501
  2. MORPHINE SULFATE [Suspect]
     Dosage: UNK
  3. XANAX [Concomitant]
     Indication: ANXIETY
     Dosage: 0.5 MG, AS NEEDED
  4. CODEINE SULFATE [Suspect]
     Dosage: UNK
  5. NEURONTIN [Suspect]
     Indication: OCCIPITAL NEURALGIA
     Dosage: UNK
     Dates: start: 20111001, end: 20110101
  6. TEGRETOL [Suspect]
     Indication: OCCIPITAL NEURALGIA
     Dosage: UNK
     Dates: start: 20111001, end: 20110101
  7. PAXIL [Concomitant]
     Indication: DEPRESSION
     Dosage: 20 MG, 2X/DAY
  8. VICODIN ES [Suspect]
     Indication: PAIN
     Dosage: UNK, 2X/DAY
     Dates: start: 20110101
  9. LYRICA [Suspect]
     Indication: INTRACRANIAL ANEURYSM
  10. NEURONTIN [Suspect]
     Indication: INTRACRANIAL ANEURYSM
  11. TEGRETOL [Suspect]
     Indication: INTRACRANIAL ANEURYSM

REACTIONS (10)
  - FEELING ABNORMAL [None]
  - IMPAIRED DRIVING ABILITY [None]
  - FALL [None]
  - ANEURYSM RUPTURED [None]
  - DRUG INEFFECTIVE [None]
  - CEREBROVASCULAR ACCIDENT [None]
  - DRUG HYPERSENSITIVITY [None]
  - PAIN [None]
  - BACK DISORDER [None]
  - IMPAIRED WORK ABILITY [None]
